FAERS Safety Report 24409828 (Version 2)
Quarter: 2025Q2

REPORT INFORMATION
  Report Type: Report from Study
  Country: BR (occurrence: BR)
  Receive Date: 20241008
  Receipt Date: 20250402
  Transmission Date: 20250716
  Serious: Yes (Hospitalization, Other)
  Sender: JOHNSON AND JOHNSON
  Company Number: BR-JNJFOC-20241004095

PATIENT
  Age: 49 Year
  Sex: Female

DRUGS (5)
  1. SIMPONI [Suspect]
     Active Substance: GOLIMUMAB
     Indication: Ankylosing spondylitis
     Dosage: LAST ADMINISTRATION DATE: JUN-2024
     Route: 058
     Dates: start: 20220103
  2. SIMPONI [Suspect]
     Active Substance: GOLIMUMAB
  3. GOLIMUMAB [Suspect]
     Active Substance: GOLIMUMAB
     Indication: Product used for unknown indication
     Route: 065
     Dates: start: 2022
  4. GOLIMUMAB [Suspect]
     Active Substance: GOLIMUMAB
  5. GOLIMUMAB [Suspect]
     Active Substance: GOLIMUMAB

REACTIONS (5)
  - Diverticulitis [Recovered/Resolved]
  - Seizure [Unknown]
  - Influenza [Unknown]
  - Pain [Unknown]
  - Drug hypersensitivity [Unknown]

NARRATIVE: CASE EVENT DATE: 20230617
